FAERS Safety Report 6142486-0 (Version None)
Quarter: 2009Q2

REPORT INFORMATION
  Report Type: 
  Country: None (occurrence: None)
  Receive Date: 20090403
  Receipt Date: 20090330
  Transmission Date: 20091009
  Serious: Yes (Death)
  Sender: FDA-Public Use
  Company Number: FR-BRISTOL-MYERS SQUIBB COMPANY-14571210

PATIENT
  Age: 79 Year
  Sex: Female

DRUGS (9)
  1. IRBESARTAN AND HYDROCHLOROTHIAZIDE [Suspect]
     Indication: HYPERTENSION
     Dosage: 1 DF=162.5MG OD/312.5 MG OD;06SEP07-04OCT07/04OCT07-27MAR09;DURATION:4WKS1D/1YR25WKS1D-1YR28WKS6DAYS
     Route: 048
     Dates: start: 20070906, end: 20090327
  2. LANSOPRAZOLE [Concomitant]
     Route: 048
  3. PRIMPERAN [Concomitant]
     Route: 048
     Dates: start: 19890101
  4. SIMVASTATIN [Concomitant]
     Indication: HYPERCHOLESTEROLAEMIA
     Route: 048
     Dates: start: 20080701
  5. VOLTAREN [Concomitant]
     Route: 048
  6. ZALDIAR [Concomitant]
     Route: 048
  7. ACETAMINOPHEN [Concomitant]
     Route: 065
  8. PREVISCAN [Concomitant]
     Route: 048
     Dates: start: 20090325
  9. ENDOTELON [Concomitant]
     Route: 048

REACTIONS (1)
  - HYPOKALAEMIA [None]
